FAERS Safety Report 23660049 (Version 1)
Quarter: 2024Q1

REPORT INFORMATION
  Report Type: Report from Study
  Country: US (occurrence: None)
  Receive Date: 20240321
  Receipt Date: 20240321
  Transmission Date: 20240410
  Serious: Yes (Other)
  Sender: FDA-Public Use
  Company Number: 2024A038513

PATIENT
  Age: 64 Year
  Sex: Female

DRUGS (9)
  1. LYNPARZA [Suspect]
     Active Substance: OLAPARIB
     Indication: Ovarian cancer
     Route: 048
     Dates: start: 20220622, end: 20240221
  2. LYNPARZA [Suspect]
     Active Substance: OLAPARIB
     Indication: Ovarian cancer
     Route: 048
     Dates: start: 20220622, end: 20240221
  3. LYNPARZA [Suspect]
     Active Substance: OLAPARIB
     Indication: Carbohydrate antigen 125 increased
     Route: 048
     Dates: start: 20220622, end: 20240221
  4. LYNPARZA [Suspect]
     Active Substance: OLAPARIB
     Indication: Ovarian cancer
     Route: 048
     Dates: start: 202207
  5. LYNPARZA [Suspect]
     Active Substance: OLAPARIB
     Indication: Ovarian cancer
     Route: 048
     Dates: start: 202207
  6. LYNPARZA [Suspect]
     Active Substance: OLAPARIB
     Indication: Carbohydrate antigen 125 increased
     Route: 048
     Dates: start: 202207
  7. TAXOL [Concomitant]
     Active Substance: PACLITAXEL
     Dosage: 135 MG/M2
     Dates: start: 20240224
  8. CARBOPLATIN [Concomitant]
     Active Substance: CARBOPLATIN
     Dates: start: 20240224
  9. AVASTIN [Concomitant]
     Active Substance: BEVACIZUMAB
     Dosage: 15 MG/KG
     Dates: start: 20240224

REACTIONS (16)
  - Ovarian cancer recurrent [Unknown]
  - Malignant neoplasm progression [Unknown]
  - Carbohydrate antigen 125 increased [Unknown]
  - Abdominal mass [Unknown]
  - Pelvic mass [Unknown]
  - Metastases to peritoneum [Unknown]
  - Hepatic mass [Unknown]
  - Aortic arteriosclerosis [Unknown]
  - Arteriosclerosis coronary artery [Unknown]
  - Pulmonary mass [Unknown]
  - Weight decreased [Unknown]
  - Abdominal distension [Unknown]
  - Hernia [Unknown]
  - Soft tissue mass [Unknown]
  - Spondylolisthesis [Unknown]
  - Osteoarthritis [Unknown]

NARRATIVE: CASE EVENT DATE: 20240221
